FAERS Safety Report 18664834 (Version 1)
Quarter: 2020Q4

REPORT INFORMATION
  Report Type: Spontaneous
  Country: IE (occurrence: IE)
  Receive Date: 20201225
  Receipt Date: 20201225
  Transmission Date: 20210114
  Serious: Yes (Hospitalization)
  Sender: FDA-Public Use
  Company Number: NVSC2020IE332511

PATIENT
  Age: 76 Year
  Sex: Male
  Weight: 67 kg

DRUGS (10)
  1. CARBOPLATIN. [Suspect]
     Active Substance: CARBOPLATIN
     Indication: PRODUCT USED FOR UNKNOWN INDICATION
     Dosage: UNK 1 IN 21 DAYS
     Route: 065
     Dates: start: 20200609, end: 20200630
  2. DOXIL [Suspect]
     Active Substance: DOXORUBICIN HYDROCHLORIDE
     Dosage: UNK
     Route: 065
     Dates: start: 20200720, end: 20200825
  3. NACL [Suspect]
     Active Substance: SODIUM CHLORIDE
     Indication: MEDICATION DILUTION
     Dosage: UNK 1 IN 21 DAYS
     Route: 042
     Dates: start: 20200609, end: 20200630
  4. VINCRISTINE SULFATE. [Suspect]
     Active Substance: VINCRISTINE SULFATE
     Dosage: UNK
     Route: 065
     Dates: start: 20200720, end: 20200825
  5. CYTOSINE ARABINOSIDE [Suspect]
     Active Substance: CYTARABINE
     Dosage: UNK
     Route: 065
     Dates: start: 20200720, end: 20200825
  6. VINCRISTINE SULFATE. [Suspect]
     Active Substance: VINCRISTINE SULFATE
     Indication: NON-SMALL CELL LUNG CANCER RECURRENT
     Dosage: EVERY 21 DAYS
     Route: 065
     Dates: start: 20200609, end: 20200630
  7. DOXIL [Suspect]
     Active Substance: DOXORUBICIN HYDROCHLORIDE
     Indication: NON-SMALL CELL LUNG CANCER RECURRENT
     Dosage: 1 UNK LIPOSOMAL INFUSION EVERY 21 DAYS
     Route: 065
     Dates: start: 20200609, end: 20200630
  8. CYTOSINE ARABINOSIDE [Suspect]
     Active Substance: CYTARABINE
     Indication: NON-SMALL CELL LUNG CANCER RECURRENT
     Dosage: 1 UNK EVERY 21 DAYS
     Route: 065
     Dates: start: 20200609, end: 20200630
  9. CARBOPLATIN. [Suspect]
     Active Substance: CARBOPLATIN
     Dosage: UNK UNK, QW
     Route: 065
     Dates: start: 20200720, end: 20200825
  10. PACLITAXEL. [Suspect]
     Active Substance: PACLITAXEL
     Indication: NON-SMALL CELL LUNG CANCER RECURRENT
     Dosage: 252 MG (135 MG/M2) EVERY 21 DAYS
     Route: 042
     Dates: start: 20200609, end: 20200630

REACTIONS (1)
  - Presyncope [Recovered/Resolved]

NARRATIVE: CASE EVENT DATE: 20200630
